FAERS Safety Report 7825968-2 (Version None)
Quarter: 2011Q4

REPORT INFORMATION
  Report Type: 
  Country: None (occurrence: None)
  Receive Date: 20111019
  Receipt Date: 20111011
  Transmission Date: 20120403
  Serious: Yes (Other)
  Sender: FDA-Public Use
  Company Number: CA-ROCHE-1005435

PATIENT
  Sex: Male

DRUGS (5)
  1. SINGULAIR [Concomitant]
  2. DESLORATADINE [Concomitant]
  3. VENTOLIN [Concomitant]
  4. XOLAIR [Suspect]
     Indication: ASTHMA
     Route: 058
     Dates: start: 20110812
  5. ALVESCO [Concomitant]

REACTIONS (1)
  - BLOOD PRESSURE INCREASED [None]
